FAERS Safety Report 14545572 (Version 1)
Quarter: 2018Q1

REPORT INFORMATION
  Report Type: Spontaneous
  Country: US (occurrence: US)
  Receive Date: 20180219
  Receipt Date: 20180219
  Transmission Date: 20180509
  Serious: No
  Sender: FDA-Public Use
  Company Number: US-CIPLA LTD.-2017US14422

PATIENT

DRUGS (3)
  1. SALBUTAMOL/IPRATROPIUM [Suspect]
     Active Substance: ALBUTEROL\IPRATROPIUM
     Indication: CHRONIC OBSTRUCTIVE PULMONARY DISEASE
     Dosage: UNK, (NEPHRON PHARMA)
     Route: 065
  2. SALBUTAMOL/IPRATROPIUM [Suspect]
     Active Substance: ALBUTEROL\IPRATROPIUM
     Dosage: 0.5?3MG/3ML/ 6 DOSES DAILY, CIPLA
     Route: 048
     Dates: start: 20170722
  3. ALBUTEROL SULFATE. [Concomitant]
     Active Substance: ALBUTEROL SULFATE
     Indication: OBSTRUCTIVE AIRWAYS DISORDER
     Dosage: UNK
     Route: 065

REACTIONS (3)
  - Cough [Not Recovered/Not Resolved]
  - Product substitution issue [Unknown]
  - Liquid product physical issue [Unknown]

NARRATIVE: CASE EVENT DATE: 20170722
